FAERS Safety Report 7023821-8 (Version None)
Quarter: 2010Q4

REPORT INFORMATION
  Report Type: 
  Country: None (occurrence: None)
  Receive Date: 20101001
  Receipt Date: 20100913
  Transmission Date: 20110411
  Serious: Yes (Death, Life-Threatening, Hospitalization, Disabling)
  Sender: FDA-Public Use
  Company Number: GR-BAYER-201036042GPV

PATIENT
  Age: 68 Year
  Sex: Male
  Weight: 78 kg

DRUGS (12)
  1. SORAFENIB [Suspect]
     Indication: NON-SMALL CELL LUNG CANCER
     Dosage: TOTAL DAILY DOSE: 800 MG  UNIT DOSE: 200 MG
     Route: 048
     Dates: start: 20100720, end: 20100806
  2. SOLOSA [Concomitant]
     Indication: DIABETES MELLITUS
     Route: 048
     Dates: start: 20000101, end: 20100901
  3. GLUCOPHAGE [Concomitant]
     Indication: DIABETES MELLITUS
     Route: 048
     Dates: start: 20000101, end: 20100901
  4. EUCREAS [Concomitant]
     Indication: DIABETES MELLITUS
     Route: 048
     Dates: start: 20080101
  5. ISCOVER [Concomitant]
     Indication: CORONARY ARTERY DISEASE
     Route: 048
     Dates: start: 20090901, end: 20100901
  6. CARVEDILOL [Concomitant]
     Indication: PROPHYLAXIS
     Route: 048
     Dates: start: 20061228, end: 20100901
  7. TRIATEC [Concomitant]
     Indication: PROPHYLAXIS
     Route: 048
     Dates: start: 20090901, end: 20100901
  8. LIPITOR [Concomitant]
     Indication: HYPERLIPIDAEMIA
     Route: 048
     Dates: start: 20061228, end: 20100901
  9. PLAVIX [Concomitant]
     Indication: THROMBOSIS
     Route: 048
     Dates: start: 20100812, end: 20100901
  10. BEROVENT [Concomitant]
     Indication: DYSPNOEA
     Dosage: INHALED
     Dates: start: 20100811, end: 20100901
  11. PULMICORT [Concomitant]
     Indication: DYSPNOEA
     Dosage: INHALED
     Dates: start: 20100811, end: 20100901
  12. AVELOX [Concomitant]
     Indication: ANTIBIOTIC THERAPY
     Route: 048
     Dates: start: 20100812, end: 20100819

REACTIONS (3)
  - CEREBRAL ISCHAEMIA [None]
  - DEEP VEIN THROMBOSIS [None]
  - GENERAL PHYSICAL HEALTH DETERIORATION [None]
